FAERS Safety Report 16689013 (Version 3)
Quarter: 2019Q3

REPORT INFORMATION
  Report Type: Report from Study
  Country: US (occurrence: US)
  Receive Date: 20190809
  Receipt Date: 20190822
  Transmission Date: 20191004
  Serious: Yes (Other)
  Sender: FDA-Public Use
  Company Number: US-GILEAD-2019-0422673

PATIENT
  Age: 68 Year
  Sex: Male

DRUGS (4)
  1. CLARITIN [Concomitant]
     Active Substance: LORATADINE
  2. LYRICA [Concomitant]
     Active Substance: PREGABALIN
  3. LEVITRA [Concomitant]
     Active Substance: VARDENAFIL HYDROCHLORIDE
  4. IDELALISIB [Suspect]
     Active Substance: IDELALISIB
     Indication: CHRONIC LYMPHOCYTIC LEUKAEMIA
     Dosage: 150 MG, BID
     Route: 048
     Dates: start: 20170207, end: 20190727

REACTIONS (4)
  - Cancer surgery [Unknown]
  - Off label use [Unknown]
  - Pneumonia [Unknown]
  - Lymphadenopathy [Not Recovered/Not Resolved]
